FAERS Safety Report 25057124 (Version 1)
Quarter: 2025Q1

REPORT INFORMATION
  Report Type: Spontaneous
  Country: US (occurrence: US)
  Receive Date: 20250310
  Receipt Date: 20250310
  Transmission Date: 20250409
  Serious: Yes (Other)
  Sender: EMD SERONO INC
  Company Number: US-Merck Healthcare KGaA-2025010792

PATIENT
  Sex: Male

DRUGS (1)
  1. REBIF [Suspect]
     Active Substance: INTERFERON BETA-1A
     Indication: Multiple sclerosis
     Dosage: (STRENGTH: 44 MCG /0.5ML)
     Dates: start: 202004

REACTIONS (4)
  - Hallucination, visual [Unknown]
  - Hallucination, tactile [Unknown]
  - Depression [Unknown]
  - Drug ineffective [Unknown]
